FAERS Safety Report 8870147 (Version 1)
Quarter: 2012Q4

REPORT INFORMATION
  Report Type: Spontaneous
  Country: US (occurrence: None)
  Receive Date: 20121025
  Receipt Date: 20121025
  Transmission Date: 20130627
  Serious: Yes (Other)
  Sender: FDA-Public Use
  Company Number: None

PATIENT
  Age: 68 Year
  Sex: Female
  Weight: 88.45 kg

DRUGS (3)
  1. OMEPRAZOLE [Suspect]
     Indication: HIATAL HERNIA
     Dosage: 20 mg. 1 x daily po
     Route: 048
     Dates: start: 20090714, end: 20090715
  2. OMEPRAZOLE [Suspect]
     Indication: GERD
     Dosage: 20 mg. 1 x daily po
     Route: 048
     Dates: start: 20090714, end: 20090715
  3. OMEPRAZOLE [Suspect]
     Indication: BACTERIAL INFECTION DUE TO HELICOBACTER PYLORI (H. PYLORI)
     Dosage: 20 mg. 1 x daily po
     Route: 048
     Dates: start: 20090714, end: 20090715

REACTIONS (4)
  - Product substitution issue [None]
  - Muscle spasms [None]
  - Diarrhoea [None]
  - Diarrhoea [None]
